FAERS Safety Report 6171050-2 (Version None)
Quarter: 2009Q2

REPORT INFORMATION
  Report Type: 
  Country: None (occurrence: None)
  Receive Date: 20090429
  Receipt Date: 20090423
  Transmission Date: 20091009
  Serious: Yes (Hospitalization)
  Sender: FDA-Public Use
  Company Number: US-ELI_LILLY_AND_COMPANY-US200904005475

PATIENT
  Age: 93 Year
  Sex: Female

DRUGS (1)
  1. FORTEO [Suspect]
     Indication: OSTEOPOROSIS
     Dosage: 20 UG, DAILY (1/D)
     Dates: start: 20080701

REACTIONS (7)
  - BALANCE DISORDER [None]
  - CLUMSINESS [None]
  - FALL [None]
  - FEAR [None]
  - SPINAL FRACTURE [None]
  - VISION BLURRED [None]
  - VISUAL ACUITY REDUCED [None]
